FAERS Safety Report 18210622 (Version 1)
Quarter: 2020Q3

REPORT INFORMATION
  Report Type: Spontaneous
  Country: US (occurrence: US)
  Receive Date: 20200829
  Receipt Date: 20200829
  Transmission Date: 20201103
  Serious: No
  Sender: FDA-Public Use
  Company Number: US-TEVA-2020-US-1823090

PATIENT
  Sex: Female

DRUGS (2)
  1. GLIMEPIRIDE. [Suspect]
     Active Substance: GLIMEPIRIDE
     Route: 065
  2. GLIMEPIRIDE. [Suspect]
     Active Substance: GLIMEPIRIDE
     Dosage: 2 OF THE 2 MILLIGRAM TABLET
     Route: 065
     Dates: start: 2000

REACTIONS (1)
  - Therapeutic product effect variable [Unknown]
